FAERS Safety Report 14733146 (Version 1)
Quarter: 2018Q2

REPORT INFORMATION
  Report Type: Spontaneous
  Country: US (occurrence: US)
  Receive Date: 20180409
  Receipt Date: 20180409
  Transmission Date: 20180711
  Serious: No
  Sender: FDA-Public Use
  Company Number: US-009507513-1804USA001598

PATIENT
  Age: 30 Year
  Sex: Female

DRUGS (1)
  1. KEYTRUDA [Suspect]
     Active Substance: PEMBROLIZUMAB
     Indication: CERVIX CARCINOMA STAGE IV
     Dosage: UNK
     Route: 042
     Dates: start: 20180313

REACTIONS (4)
  - Back pain [Unknown]
  - Somnolence [Unknown]
  - Vomiting [Unknown]
  - Product use in unapproved indication [Unknown]

NARRATIVE: CASE EVENT DATE: 2018
